FAERS Safety Report 13807917 (Version 4)
Quarter: 2017Q4

REPORT INFORMATION
  Report Type: Report from Study
  Country: JP (occurrence: JP)
  Receive Date: 20170728
  Receipt Date: 20171207
  Transmission Date: 20180320
  Serious: Yes (Hospitalization, Other)
  Sender: FDA-Public Use
  Company Number: JP-INCYTE CORPORATION-2017IN006035

PATIENT

DRUGS (2)
  1. JAKAVI [Suspect]
     Active Substance: RUXOLITINIB
     Indication: MYELOFIBROSIS
     Dosage: 15 MG, BID
     Route: 048
     Dates: start: 201612
  2. JAKAVI [Suspect]
     Active Substance: RUXOLITINIB
     Dosage: 10 MG, BID
     Route: 048
     Dates: start: 201707

REACTIONS (7)
  - Oral candidiasis [Not Recovered/Not Resolved]
  - Haemoglobin decreased [Unknown]
  - Bronchitis [Unknown]
  - Platelet count decreased [Unknown]
  - Cholangitis [Not Recovered/Not Resolved]
  - C-reactive protein increased [Unknown]
  - Myelofibrosis [Unknown]

NARRATIVE: CASE EVENT DATE: 201707
